FAERS Safety Report 17484202 (Version 1)
Quarter: 2020Q1

REPORT INFORMATION
  Report Type: Spontaneous
  Country: US (occurrence: US)
  Receive Date: 20200302
  Receipt Date: 20200302
  Transmission Date: 20200409
  Serious: Yes (Hospitalization, Other)
  Sender: FDA-Public Use
  Company Number: US-ACTELION-A-CH2020-202275

PATIENT
  Age: 31 Year
  Sex: Female

DRUGS (4)
  1. EPOPROSTENOL SODIUM. [Suspect]
     Active Substance: EPOPROSTENOL SODIUM
     Indication: PULMONARY ARTERIAL HYPERTENSION
     Dosage: 2 NG/KG, PER MIN WITH INCREASING DOSE BY INCREMENTS OF 1-2NG/KG/MIN EVERY 5 MINS
     Route: 042
  2. MACITENTAN [Suspect]
     Active Substance: MACITENTAN
     Indication: PULMONARY ARTERIAL HYPERTENSION
     Route: 048
  3. EPOPROSTENOL SODIUM. [Suspect]
     Active Substance: EPOPROSTENOL SODIUM
     Dosage: UNK
     Route: 042
  4. SILDENAFIL. [Suspect]
     Active Substance: SILDENAFIL
     Indication: PULMONARY ARTERIAL HYPERTENSION
     Route: 065

REACTIONS (9)
  - Exposure during pregnancy [Unknown]
  - Nausea [Unknown]
  - Hypotension [Unknown]
  - Dyspnoea [Unknown]
  - Lethargy [Unknown]
  - Pain in jaw [Unknown]
  - Flushing [Unknown]
  - Caesarean section [Unknown]
  - Pulmonary embolism [Unknown]
